FAERS Safety Report 5822928-8 (Version None)
Quarter: 2008Q3

REPORT INFORMATION
  Report Type: 
  Country: None (occurrence: None)
  Receive Date: 20080724
  Receipt Date: 20080724
  Transmission Date: 20090109
  Serious: Yes (Hospitalization)
  Sender: FDA-Public Use
  Company Number: None

PATIENT
  Sex: Female
  Weight: 58.0604 kg

DRUGS (1)
  1. EVISTA [Suspect]
     Indication: OSTEOPOROSIS
     Dosage: 60MG DAILY
     Dates: start: 20060829, end: 20070629

REACTIONS (15)
  - BALANCE DISORDER [None]
  - CEREBRAL INFARCTION [None]
  - CONCUSSION [None]
  - CONVULSION [None]
  - DISCOMFORT [None]
  - DIZZINESS [None]
  - FALL [None]
  - FATIGUE [None]
  - FEELING ABNORMAL [None]
  - HYPERHIDROSIS [None]
  - HYPOAESTHESIA [None]
  - LOSS OF CONSCIOUSNESS [None]
  - NAUSEA [None]
  - PHOTOPSIA [None]
  - PRESYNCOPE [None]
